FAERS Safety Report 14742042 (Version 1)
Quarter: 2018Q2

REPORT INFORMATION
  Report Type: Spontaneous
  Country: US (occurrence: US)
  Receive Date: 20180405
  Receipt Date: 20180405
  Transmission Date: 20180711
  Serious: Yes (Disabling)
  Sender: FDA-Public Use
  Company Number: None

PATIENT
  Age: 73 Year
  Sex: Female
  Weight: 85.5 kg

DRUGS (9)
  1. AMOXICILLIN/CLAVULANATE [Suspect]
     Active Substance: AMOXICILLIN\CLAVULANATE POTASSIUM
     Indication: SINUSITIS
     Dosage: ?          QUANTITY:1 TABLET(S);?
     Route: 048
     Dates: start: 20180226, end: 20180228
  2. DHA-500 [Concomitant]
  3. ARMOUR THYROID [Concomitant]
     Active Substance: THYROID, PORCINE
  4. BIOTIN [Concomitant]
     Active Substance: BIOTIN
  5. ORTHO MULTI-GREENS MULTIVITAMINS [Concomitant]
  6. MAGNESIUM CITRATE. [Concomitant]
     Active Substance: MAGNESIUM CITRATE
  7. VITAMIN D3 [Concomitant]
     Active Substance: CHOLECALCIFEROL
  8. EPICOR [Concomitant]
  9. CURCUMIN PHYTOSOME [Concomitant]

REACTIONS (3)
  - Urticaria [None]
  - Rash [None]
  - Lip swelling [None]

NARRATIVE: CASE EVENT DATE: 20180228
